FAERS Safety Report 5493701-8 (Version None)
Quarter: 2007Q4

REPORT INFORMATION
  Report Type: 
  Country: None (occurrence: None)
  Receive Date: 20071023
  Receipt Date: 20071017
  Transmission Date: 20080405
  Serious: Yes (Hospitalization)
  Sender: FDA-Public Use
  Company Number: DK-ASTRAZENECA-2007SE04191

PATIENT
  Age: 20909 Day
  Sex: Female
  Weight: 76 kg

DRUGS (5)
  1. SEROQUEL [Suspect]
     Indication: PSYCHOTIC DISORDER
     Route: 048
     Dates: start: 20070601, end: 20070618
  2. NEXIUM [Concomitant]
     Indication: GASTRIC ULCER
     Route: 048
  3. TRIQUILAR [Concomitant]
     Indication: HORMONE THERAPY
     Route: 048
  4. B-COMBIN STAERK [Concomitant]
     Route: 048
  5. THIAMIN [Concomitant]
     Route: 048

REACTIONS (2)
  - DERMATOSIS [None]
  - HEPATITIS [None]
